FAERS Safety Report 8224505-0 (Version None)
Quarter: 2012Q1

REPORT INFORMATION
  Report Type: 
  Country: None (occurrence: None)
  Receive Date: 20120319
  Receipt Date: 20120307
  Transmission Date: 20120608
  Serious: Yes (Hospitalization)
  Sender: FDA-Public Use
  Company Number: UTC-016358

PATIENT
  Age: 47 Year
  Sex: Female
  Weight: 92.9 kg

DRUGS (5)
  1. REMODULIN [Suspect]
     Indication: PULMONARY ARTERIAL HYPERTENSION
     Dosage: 40.32 UG/KG (0.028 UG/KG, 1 IN 1 MIN), INTRAVENOUS
     Route: 042
     Dates: start: 20110118
  2. DIURETICS (DIURETICS) [Concomitant]
  3. COUMADIN [Concomitant]
  4. OXYGEN (OXYGEN) [Concomitant]
  5. ADCIRCA [Concomitant]

REACTIONS (4)
  - NAUSEA [None]
  - DEHYDRATION [None]
  - VOMITING [None]
  - DIARRHOEA [None]
